FAERS Safety Report 12279677 (Version 1)
Quarter: 2016Q2

REPORT INFORMATION
  Report Type: Spontaneous
  Country: PL (occurrence: PL)
  Receive Date: 20160418
  Receipt Date: 20160418
  Transmission Date: 20160815
  Serious: Yes (Other)
  Sender: FDA-Public Use
  Company Number: PL-PFIZER INC-2016210021

PATIENT
  Age: 82 Year
  Sex: Male

DRUGS (1)
  1. DALACIN C [Suspect]
     Active Substance: CLINDAMYCIN PHOSPHATE
     Indication: ANIMAL SCRATCH
     Dosage: 300 MG, EVERY 8 HOURS
     Dates: start: 20160411

REACTIONS (3)
  - Chromaturia [Not Recovered/Not Resolved]
  - Haemorrhage urinary tract [Not Recovered/Not Resolved]
  - Micturition urgency [Not Recovered/Not Resolved]
